FAERS Safety Report 5180940-9 (Version None)
Quarter: 2006Q4

REPORT INFORMATION
  Report Type: 
  Country: None (occurrence: None)
  Receive Date: 20061214
  Receipt Date: 20061214
  Transmission Date: 20070319
  Serious: Yes (Hospitalization)
  Sender: FDA-Public Use
  Company Number: None

PATIENT
  Age: 65 Year
  Sex: Male

DRUGS (1)
  1. LOTENSIN [Suspect]
     Indication: BLOOD PRESSURE
     Dosage: PO  10MG
     Route: 048

REACTIONS (4)
  - ACUTE CORONARY SYNDROME [None]
  - DYSARTHRIA [None]
  - HYPOTENSION [None]
  - LETHARGY [None]
